FAERS Safety Report 9013309 (Version 1)
Quarter: 2013Q1

REPORT INFORMATION
  Report Type: Spontaneous
  Country: US (occurrence: US)
  Receive Date: 20130115
  Receipt Date: 20130115
  Transmission Date: 20140127
  Serious: Yes (Life-Threatening, Other)
  Sender: FDA-Public Use
  Company Number: US-009507513-1012USA00451

PATIENT
  Age: 10 Year
  Sex: Female
  Weight: 45.35 kg

DRUGS (6)
  1. SINGULAIR [Suspect]
     Indication: ASTHMA
     Dosage: 1 DF, HS
     Route: 048
     Dates: start: 20061101, end: 20100202
  2. CLARITIN [Concomitant]
  3. FLOVENT [Concomitant]
  4. FLONASE [Concomitant]
  5. ALBUTEROL [Concomitant]
  6. ZOLOFT [Concomitant]

REACTIONS (7)
  - Abnormal behaviour [Unknown]
  - Anger [Unknown]
  - Educational problem [Unknown]
  - Self esteem decreased [Unknown]
  - Anxiety [Unknown]
  - Depression [Unknown]
  - Aggression [Unknown]
